FAERS Safety Report 18430721 (Version 3)
Quarter: 2020Q4

REPORT INFORMATION
  Report Type: Report from Study
  Country: US (occurrence: US)
  Receive Date: 20201027
  Receipt Date: 20201126
  Transmission Date: 20210114
  Serious: Yes (Hospitalization, Other)
  Sender: FDA-Public Use
  Company Number: US-GILEAD-2020-0500620

PATIENT
  Sex: Male

DRUGS (21)
  1. SODIUM CHLORIDE. [Concomitant]
     Active Substance: SODIUM CHLORIDE
  2. DIASTAT [DIAZEPAM] [Concomitant]
  3. DUONEB [Concomitant]
     Active Substance: ALBUTEROL SULFATE\IPRATROPIUM BROMIDE
  4. CULTURELLE FOR KIDS [LACTOBACILLUS RHAMNOSUS] [Concomitant]
  5. CHILDRENS TYLENOL [Concomitant]
     Active Substance: ACETAMINOPHEN
  6. EPIDIOLEX [Concomitant]
     Active Substance: CANNABIDIOL
  7. CLOBAZAM. [Concomitant]
     Active Substance: CLOBAZAM
  8. AZTREONAM LYSINE [Suspect]
     Active Substance: AZTREONAM LYSINE
     Indication: PNEUMONIA
  9. IBUPROFEN. [Concomitant]
     Active Substance: IBUPROFEN
  10. LEVOCARNITINE. [Concomitant]
     Active Substance: LEVOCARNITINE
  11. TOBRAMYCIN [TOBRAMYCIN SULFATE] [Concomitant]
     Active Substance: TOBRAMYCIN SULFATE
  12. KEPPRA [Concomitant]
     Active Substance: LEVETIRACETAM
  13. TOPAMAX [Concomitant]
     Active Substance: TOPIRAMATE
  14. AZTREONAM LYSINE [Suspect]
     Active Substance: AZTREONAM LYSINE
     Indication: INTERSTITIAL LUNG DISEASE
     Dosage: 75 MG, TID 28 D ON AND 28 D OFF
     Route: 055
     Dates: start: 20170811
  15. CLONAZEPAM. [Concomitant]
     Active Substance: CLONAZEPAM
  16. DEPAKENE [Concomitant]
     Active Substance: VALPROIC ACID
  17. FAMOTIDINE. [Concomitant]
     Active Substance: FAMOTIDINE
  18. PROVENTIL HFA [SALBUTAMOL] [Concomitant]
  19. PULMICORT TURBUHALER [Concomitant]
     Active Substance: BUDESONIDE
  20. ROBINUL [Concomitant]
     Active Substance: GLYCOPYRROLATE
  21. SINGULAIR [Concomitant]
     Active Substance: MONTELUKAST SODIUM

REACTIONS (4)
  - Seizure [Unknown]
  - Intentional dose omission [Not Recovered/Not Resolved]
  - Pneumonia [Not Recovered/Not Resolved]
  - Off label use [Not Recovered/Not Resolved]
